FAERS Safety Report 26125263 (Version 1)
Quarter: 2025Q4

REPORT INFORMATION
  Report Type: Spontaneous
  Country: CN (occurrence: CN)
  Receive Date: 20251205
  Receipt Date: 20251205
  Transmission Date: 20260117
  Serious: Yes (Life-Threatening, Other)
  Sender: ROCHE
  Company Number: CN-BoehringerIngelheim-2025-BI-111025

PATIENT
  Age: 61 Year
  Sex: Male

DRUGS (2)
  1. ALTEPLASE [Suspect]
     Active Substance: ALTEPLASE
     Indication: Thrombolysis
     Dosage: BOLUS OVER 1 MINUTE
     Route: 042
     Dates: start: 20251121, end: 20251121
  2. ALTEPLASE [Suspect]
     Active Substance: ALTEPLASE
     Dosage: FOLLOWED BY INTRAVENOUS INFUSION OF ALTEPLASE AT 44 ML/H
     Route: 042
     Dates: start: 20251121, end: 20251121

REACTIONS (7)
  - Dyspnoea [Unknown]
  - Haemoptysis [Unknown]
  - Epilepsy [Unknown]
  - Heart rate increased [Unknown]
  - Blood pressure increased [Unknown]
  - Hypersensitivity [Unknown]
  - Hypoxia [Unknown]

NARRATIVE: CASE EVENT DATE: 20251121
